FAERS Safety Report 10063788 (Version 1)
Quarter: 2014Q2

REPORT INFORMATION
  Report Type: Spontaneous
  Country: SE (occurrence: SE)
  Receive Date: 20140408
  Receipt Date: 20140408
  Transmission Date: 20141212
  Serious: Yes (Other)
  Sender: FDA-Public Use
  Company Number: SE-ROCHE-1379313

PATIENT
  Age: 66 Year
  Sex: Female

DRUGS (2)
  1. CELLCEPT [Suspect]
     Indication: DERMATOMYOSITIS
     Route: 065
  2. CELLCEPT [Suspect]
     Route: 065

REACTIONS (3)
  - Diarrhoea [Recovered/Resolved]
  - Crohn^s disease [Unknown]
  - Off label use [Unknown]
